FAERS Safety Report 4264449-2 (Version None)
Quarter: 2004Q1

REPORT INFORMATION
  Report Type: 
  Country: None (occurrence: None)
  Receive Date: 20040106
  Receipt Date: 20031229
  Transmission Date: 20041129
  Serious: Yes (Hospitalization)
  Sender: FDA-Public Use
  Company Number: FR-GLAXOSMITHKLINE-B0318887A

PATIENT
  Age: 37 Year
  Sex: Male

DRUGS (1)
  1. ZYBAN [Suspect]
     Indication: EX-SMOKER
     Dosage: 150MG PER DAY
     Route: 048
     Dates: start: 20031204, end: 20031215

REACTIONS (4)
  - DIPLOPIA [None]
  - HEADACHE [None]
  - IIIRD NERVE PARALYSIS [None]
  - STRABISMUS [None]
